FAERS Safety Report 5316945-4 (Version None)
Quarter: 2007Q2

REPORT INFORMATION
  Report Type: 
  Country: None (occurrence: None)
  Receive Date: 20070504
  Receipt Date: 20070426
  Transmission Date: 20071010
  Serious: Yes (Hospitalization)
  Sender: FDA-Public Use
  Company Number: CH-BRISTOL-MYERS SQUIBB COMPANY-13716212

PATIENT
  Age: 49 Year
  Sex: Male

DRUGS (7)
  1. HOLOXAN [Suspect]
     Indication: B-CELL LYMPHOMA
     Route: 042
     Dates: start: 20070117, end: 20070118
  2. MABTHERA [Concomitant]
     Dates: start: 20061023, end: 20070118
  3. ENDOXAN [Concomitant]
     Dates: start: 20061023, end: 20061213
  4. DOXORUBICIN HCL [Concomitant]
     Dates: start: 20061023, end: 20061213
  5. VINCRISTINE [Concomitant]
     Dates: start: 20061023, end: 20061213
  6. CARBOPLATIN [Concomitant]
     Dates: start: 20070116, end: 20070118
  7. ETOPOSIDE [Concomitant]
     Dates: start: 20070116, end: 20070118

REACTIONS (4)
  - CONFUSIONAL STATE [None]
  - ENCEPHALOPATHY [None]
  - HALLUCINATION [None]
  - PARANOIA [None]
